FAERS Safety Report 12215628 (Version 2)
Quarter: 2016Q3

REPORT INFORMATION
  Report Type: Report from Study
  Country: US (occurrence: US)
  Receive Date: 20160328
  Receipt Date: 20160805
  Transmission Date: 20161109
  Serious: Yes (Other)
  Sender: FDA-Public Use
  Company Number: US-GILEAD-2016-0205046

PATIENT
  Age: 63 Year
  Sex: Female

DRUGS (1)
  1. LEDIPASVIR/SOFOSBUVIR [Suspect]
     Active Substance: LEDIPASVIR\SOFOSBUVIR
     Indication: HEPATITIS C
     Dosage: 1 DF, QD
     Route: 048
     Dates: start: 20160228, end: 20160306

REACTIONS (29)
  - Dry eye [Unknown]
  - Photophobia [Unknown]
  - Joint swelling [Unknown]
  - Pain [Unknown]
  - Anger [Unknown]
  - Suicidal ideation [Unknown]
  - Loss of consciousness [Unknown]
  - Abnormal dreams [Unknown]
  - Paraesthesia [Unknown]
  - Depression [Unknown]
  - Unevaluable event [Unknown]
  - Asthenia [Unknown]
  - Palpitations [Unknown]
  - Disturbance in attention [Unknown]
  - Feeling abnormal [Unknown]
  - Neck pain [Not Recovered/Not Resolved]
  - Hypertension [Unknown]
  - Peripheral swelling [Unknown]
  - Mood swings [Unknown]
  - Fatigue [Unknown]
  - Paralysis [Not Recovered/Not Resolved]
  - Agitation [Unknown]
  - Tachyphrenia [Unknown]
  - Tinnitus [Not Recovered/Not Resolved]
  - Hepatitis C virus test positive [Unknown]
  - Hallucination, auditory [Unknown]
  - Rheumatoid arthritis [Unknown]
  - Aggression [Unknown]
  - Back pain [Unknown]

NARRATIVE: CASE EVENT DATE: 2016
